FAERS Safety Report 7099186-2 (Version None)
Quarter: 2010Q4

REPORT INFORMATION
  Report Type: 
  Country: None (occurrence: None)
  Receive Date: 20101112
  Receipt Date: 20101105
  Transmission Date: 20110411
  Serious: Yes (Other)
  Sender: FDA-Public Use
  Company Number: FR-ABBOTT-10P-056-0683834-00

PATIENT
  Sex: Female

DRUGS (2)
  1. HUMIRA [Suspect]
     Indication: PSORIASIS
     Route: 058
     Dates: start: 20100301
  2. SEROPLEX [Concomitant]
     Indication: DEPRESSION

REACTIONS (3)
  - ARTHROPATHY [None]
  - DEPRESSION [None]
  - MEMORY IMPAIRMENT [None]
